FAERS Safety Report 9157835 (Version 1)
Quarter: 2013Q1

REPORT INFORMATION
  Report Type: Spontaneous
  Country: JP (occurrence: None)
  Receive Date: 20130207
  Receipt Date: 20130207
  Transmission Date: 20140127
  Serious: Yes (Other)
  Sender: FDA-Public Use
  Company Number: 2013-014431

PATIENT
  Sex: 0

DRUGS (1)
  1. EYLEA (AFLIBERCEPT) SOLUTION FOR INJECTION [Suspect]
     Indication: AGE-RELATED MACULAR DEGENERATION
     Route: 031

REACTIONS (1)
  - Cerebral infarction [None]
